FAERS Safety Report 18756706 (Version 3)
Quarter: 2022Q1

REPORT INFORMATION
  Report Type: Report from Study
  Country: GB (occurrence: GB)
  Receive Date: 20210119
  Receipt Date: 20220107
  Transmission Date: 20220423
  Serious: Yes (Other)
  Sender: FDA-Public Use
  Company Number: GB-MYLANLABS-2021M1002633

PATIENT
  Age: 57 Year
  Sex: Female

DRUGS (5)
  1. DILTIAZEM [Suspect]
     Active Substance: DILTIAZEM
     Indication: Ventricular extrasystoles
     Dosage: UNK
     Dates: start: 2020
  2. DILTIAZEM [Suspect]
     Active Substance: DILTIAZEM
     Indication: Supraventricular extrasystoles
     Dosage: UNK
  3. MAVENCLAD [Suspect]
     Active Substance: CLADRIBINE
     Indication: Multiple sclerosis
     Dosage: FIRST YEAR FIRST WEEK TREATMENT
     Route: 048
     Dates: start: 20200113
  4. MAVENCLAD [Suspect]
     Active Substance: CLADRIBINE
     Dosage: FIRST YEAR SECOND WEEK TREATMENT
     Route: 048
     Dates: start: 202002
  5. Covid-19 vaccine [Concomitant]
     Indication: COVID-19 immunisation
     Dosage: UNK

REACTIONS (5)
  - Supraventricular extrasystoles [Recovering/Resolving]
  - Lymphocyte count decreased [Recovered/Resolved]
  - Suspected COVID-19 [Unknown]
  - Dizziness postural [Not Recovered/Not Resolved]
  - Ventricular extrasystoles [Recovering/Resolving]

NARRATIVE: CASE EVENT DATE: 20200101
